FAERS Safety Report 18672739 (Version 1)
Quarter: 2020Q4

REPORT INFORMATION
  Report Type: Spontaneous
  Country: CH (occurrence: CH)
  Receive Date: 20201228
  Receipt Date: 20201228
  Transmission Date: 20210114
  Serious: Yes (Death)
  Sender: FDA-Public Use
  Company Number: CH-TEVA-2020-CH-1862763

PATIENT

DRUGS (5)
  1. VIMPAT [Concomitant]
     Active Substance: LACOSAMIDE
     Route: 065
  2. PARACETAMOL SINTETICA [Concomitant]
     Active Substance: ACETAMINOPHEN
     Route: 065
  3. NACL B. BRAUN [Concomitant]
     Dosage: SOL VECTR 0.9% 20ML MINI
     Route: 065
  4. LEVETIRACETAM-MEPHA INFUSIONSKONZENTRAT [Suspect]
     Active Substance: LEVETIRACETAM
     Dosage: 500MG/5ML
     Route: 042
     Dates: start: 20200822, end: 20200911
  5. NACL B. BRAUN [Concomitant]
     Dosage: SOL PER 0.9% 50 ML ECOFLAC
     Route: 065

REACTIONS (2)
  - Death [Fatal]
  - Off label use [Unknown]

NARRATIVE: CASE EVENT DATE: 20200822
